FAERS Safety Report 22895971 (Version 2)
Quarter: 2023Q4

REPORT INFORMATION
  Report Type: Spontaneous
  Country: ES (occurrence: ES)
  Receive Date: 20230901
  Receipt Date: 20231024
  Transmission Date: 20240110
  Serious: No
  Sender: FDA-Public Use
  Company Number: ES-JNJFOC-20230872326

PATIENT

DRUGS (4)
  1. SIMPONI [Suspect]
     Active Substance: GOLIMUMAB
     Indication: Product used for unknown indication
     Dosage: STRENGTH: 50.00 MG / 0.50 ML
     Route: 058
  2. SIMPONI [Suspect]
     Active Substance: GOLIMUMAB
  3. SIMPONI [Suspect]
     Active Substance: GOLIMUMAB
     Indication: Product used for unknown indication
     Dosage: STRENGTH: 50.00 MG / 0.50 ML
     Route: 058
  4. SIMPONI [Suspect]
     Active Substance: GOLIMUMAB

REACTIONS (1)
  - Device failure [Unknown]
